FAERS Safety Report 10331967 (Version 1)
Quarter: 2014Q3

REPORT INFORMATION
  Report Type: Spontaneous
  Country: US (occurrence: US)
  Receive Date: 20140722
  Receipt Date: 20140722
  Transmission Date: 20150326
  Serious: Yes (Other)
  Sender: FDA-Public Use
  Company Number: US-PFIZER INC-2014200528

PATIENT

DRUGS (1)
  1. LYRICA [Suspect]
     Active Substance: PREGABALIN
     Dosage: UNK

REACTIONS (11)
  - Thirst [Unknown]
  - Peripheral swelling [Unknown]
  - Dizziness [Unknown]
  - Food craving [Unknown]
  - Weight increased [Unknown]
  - Mental impairment [Unknown]
  - Derealisation [Unknown]
  - Memory impairment [Unknown]
  - Feeling abnormal [Unknown]
  - Urine output decreased [Unknown]
  - Middle insomnia [Unknown]
